FAERS Safety Report 24539318 (Version 1)
Quarter: 2024Q4

REPORT INFORMATION
  Report Type: Spontaneous
  Country: SK (occurrence: SK)
  Receive Date: 20241023
  Receipt Date: 20241023
  Transmission Date: 20250114
  Serious: Yes (Other)
  Sender: SANDOZ
  Company Number: SK-002147023-PHHY2019SK110801

PATIENT
  Age: 82 Year
  Sex: Female

DRUGS (6)
  1. GLICLAZIDE [Suspect]
     Active Substance: GLICLAZIDE
     Indication: Type 2 diabetes mellitus
     Dosage: 30 MG, QD
     Route: 065
     Dates: start: 20160318
  2. INSULIN GLARGINE [Suspect]
     Active Substance: INSULIN GLARGINE
     Indication: Type 2 diabetes mellitus
     Dosage: 100 DF, QD (100 IU/ML, QD )
     Route: 065
     Dates: start: 20150601, end: 20151218
  3. INSULIN GLARGINE [Suspect]
     Active Substance: INSULIN GLARGINE
     Dosage: 300 DF, QD
     Route: 065
     Dates: start: 20161212
  4. LINAGLIPTIN [Suspect]
     Active Substance: LINAGLIPTIN
     Indication: Type 2 diabetes mellitus
     Dosage: QD (UNK UNK, QD)
     Route: 065
     Dates: start: 20150902
  5. METFORMIN HYDROCHLORIDE [Suspect]
     Active Substance: METFORMIN HYDROCHLORIDE
     Indication: Product used for unknown indication
     Dosage: 2000 MG, UNK (2000 MG)
     Route: 065
  6. SITAGLIPTIN [Suspect]
     Active Substance: SITAGLIPTIN
     Indication: Type 2 diabetes mellitus
     Dosage: 100 MG, QD
     Route: 065
     Dates: start: 20150601, end: 20150902

REACTIONS (7)
  - Renal failure [Unknown]
  - Diabetic metabolic decompensation [Unknown]
  - Hypoglycaemia [Recovered/Resolved]
  - Glomerular filtration rate decreased [Unknown]
  - Blood glucose increased [Recovered/Resolved]
  - Glycosylated haemoglobin increased [Unknown]
  - Nephropathy [Unknown]

NARRATIVE: CASE EVENT DATE: 20150601
